FAERS Safety Report 5386757-4 (Version None)
Quarter: 2007Q3

REPORT INFORMATION
  Report Type: 
  Country: None (occurrence: None)
  Receive Date: 20070713
  Receipt Date: 20070702
  Transmission Date: 20080115
  Serious: Yes (Death, Other)
  Sender: FDA-Public Use
  Company Number: US-PFIZER INC-2006129301

PATIENT
  Sex: Female
  Weight: 72.6 kg

DRUGS (3)
  1. CELEBREX [Suspect]
     Indication: PAIN
     Route: 048
     Dates: start: 20030301, end: 20050601
  2. BEXTRA [Suspect]
     Indication: PAIN
     Route: 048
     Dates: start: 20041001, end: 20050401
  3. VIOXX [Suspect]
     Indication: PAIN
     Route: 048
     Dates: start: 20001101, end: 20040101

REACTIONS (1)
  - MYOCARDIAL INFARCTION [None]
